FAERS Safety Report 25431557 (Version 3)
Quarter: 2025Q4

REPORT INFORMATION
  Report Type: Spontaneous
  Country: US (occurrence: US)
  Receive Date: 20250613
  Receipt Date: 20251121
  Transmission Date: 20260118
  Serious: No
  Sender: CSL BEHRING
  Company Number: US-BEH-2025208677

PATIENT
  Sex: Female

DRUGS (3)
  1. HIZENTRA [Suspect]
     Active Substance: HUMAN IMMUNOGLOBULIN G
     Indication: Hypogammaglobulinaemia
     Dosage: 8 G, EVERY 3 WEEKS
     Route: 058
     Dates: start: 202106
  2. HIZENTRA [Suspect]
     Active Substance: HUMAN IMMUNOGLOBULIN G
     Dosage: 8 G, EVERY 3 WEEKS
     Route: 058
     Dates: start: 201807
  3. DIPHENHYDRAMINE [Concomitant]
     Active Substance: DIPHENHYDRAMINE
     Indication: Hypersensitivity

REACTIONS (7)
  - Infusion site swelling [Unknown]
  - Gastroenteritis viral [Unknown]
  - Infusion site haemorrhage [Unknown]
  - Lack of infusion site rotation [Unknown]
  - Infusion site discharge [Unknown]
  - Incorrect drug administration rate [Unknown]
  - Product leakage [Unknown]
